FAERS Safety Report 5247906-1 (Version None)
Quarter: 2007Q1

REPORT INFORMATION
  Report Type: 
  Country: None (occurrence: None)
  Receive Date: 20070227
  Receipt Date: 20070214
  Transmission Date: 20070707
  Serious: Yes (Hospitalization, Other)
  Sender: FDA-Public Use
  Company Number: DE-BRISTOL-MYERS SQUIBB COMPANY-13683388

PATIENT
  Age: 52 Year
  Sex: Male
  Weight: 85 kg

DRUGS (4)
  1. VIDEX [Suspect]
     Indication: HIV INFECTION
     Dates: start: 19980501
  2. NORVIR [Suspect]
     Indication: HIV INFECTION
     Dates: start: 20011201
  3. TELZIR [Suspect]
     Indication: HIV INFECTION
     Dates: start: 20041201
  4. VIREAD [Suspect]
     Indication: HIV INFECTION
     Dates: start: 20030101

REACTIONS (4)
  - BRADYPHRENIA [None]
  - DEPRESSED MOOD [None]
  - DISTURBANCE IN ATTENTION [None]
  - IMPAIRED WORK ABILITY [None]
